FAERS Safety Report 10571251 (Version 2)
Quarter: 2014Q4

REPORT INFORMATION
  Report Type: Spontaneous
  Country: US (occurrence: US)
  Receive Date: 20141107
  Receipt Date: 20141205
  Transmission Date: 20150529
  Serious: No
  Sender: FDA-Public Use
  Company Number: US-009507513-1411USA003113

PATIENT
  Age: 27 Year
  Sex: Female
  Weight: 97.51 kg

DRUGS (2)
  1. NEXPLANON [Suspect]
     Active Substance: ETONOGESTREL
     Dosage: UNK
     Route: 059
     Dates: start: 201411
  2. NEXPLANON [Suspect]
     Active Substance: ETONOGESTREL
     Indication: CONTRACEPTION
     Dosage: 68MG/ONCE EVERY 3 YEARS
     Route: 059
     Dates: start: 20140605, end: 201411

REACTIONS (1)
  - Device kink [Recovered/Resolved]

NARRATIVE: CASE EVENT DATE: 201411
